FAERS Safety Report 13141693 (Version 1)
Quarter: 2017Q1

REPORT INFORMATION
  Report Type: Spontaneous
  Country: US (occurrence: US)
  Receive Date: 20170123
  Receipt Date: 20170123
  Transmission Date: 20170428
  Serious: Yes (Other)
  Sender: FDA-Public Use
  Company Number: US-TEVA-731731USA

PATIENT
  Age: 63 Year
  Sex: Female

DRUGS (12)
  1. CARBAMAZEPIN [Concomitant]
     Active Substance: CARBAMAZEPINE
  2. VESICARE [Concomitant]
     Active Substance: SOLIFENACIN SUCCINATE
  3. AMLODIPINE [Concomitant]
     Active Substance: AMLODIPINE BESYLATE
  4. GABAPENTIN. [Concomitant]
     Active Substance: GABAPENTIN
  5. OMEPRAZOLE. [Concomitant]
     Active Substance: OMEPRAZOLE
  6. COPAXONE [Suspect]
     Active Substance: GLATIRAMER ACETATE
     Indication: MULTIPLE SCLEROSIS
     Route: 058
     Dates: start: 20140411
  7. ALENDRONATE [Concomitant]
     Active Substance: ALENDRONATE SODIUM
  8. BACLOFEN. [Concomitant]
     Active Substance: BACLOFEN
  9. CELECOXIB. [Concomitant]
     Active Substance: CELECOXIB
  10. TRAZODONE [Concomitant]
     Active Substance: TRAZODONE HYDROCHLORIDE
  11. MONTELUKAST [Concomitant]
     Active Substance: MONTELUKAST SODIUM
  12. DULOXETINE. [Concomitant]
     Active Substance: DULOXETINE

REACTIONS (2)
  - Multiple sclerosis relapse [Not Recovered/Not Resolved]
  - Drug dose omission [Unknown]

NARRATIVE: CASE EVENT DATE: 201701
